FAERS Safety Report 13929262 (Version 1)
Quarter: 2017Q3

REPORT INFORMATION
  Report Type: Spontaneous
  Country: US (occurrence: US)
  Receive Date: 20170901
  Receipt Date: 20170901
  Transmission Date: 20171127
  Serious: Yes (Disabling)
  Sender: FDA-Public Use
  Company Number: None

PATIENT
  Sex: Female
  Weight: 65.7 kg

DRUGS (8)
  1. GABAPENTIN. [Suspect]
     Active Substance: GABAPENTIN
     Indication: NEURALGIA
     Dosage: ?          QUANTITY:360 CAPSULE(S);OTHER FREQUENCY:3 CAPS AT BEDTIME;?
     Route: 048
     Dates: start: 20170824, end: 20170827
  2. PROTONIX [Concomitant]
     Active Substance: PANTOPRAZOLE SODIUM
  3. LOSARTAN. [Concomitant]
     Active Substance: LOSARTAN
  4. VITAMIN D [Concomitant]
     Active Substance: CHOLECALCIFEROL
  5. COQ10 [Concomitant]
     Active Substance: UBIDECARENONE
  6. SYMBICORT [Concomitant]
     Active Substance: BUDESONIDE\FORMOTEROL FUMARATE DIHYDRATE
  7. CALCIUM [Concomitant]
     Active Substance: CALCIUM
  8. MAGNESIUM [Concomitant]
     Active Substance: MAGNESIUM

REACTIONS (6)
  - Impaired work ability [None]
  - Product quality issue [None]
  - Somnolence [None]
  - Sedation [None]
  - Product formulation issue [None]
  - Incorrect dose administered [None]

NARRATIVE: CASE EVENT DATE: 20170824
